FAERS Safety Report 23405653 (Version 1)
Quarter: 2024Q1

REPORT INFORMATION
  Report Type: Spontaneous
  Country: US (occurrence: US)
  Receive Date: 20240116
  Receipt Date: 20240116
  Transmission Date: 20240409
  Serious: No
  Sender: FDA-Public Use
  Company Number: US-JNJFOC-20240122642

PATIENT
  Sex: Female

DRUGS (2)
  1. SPRAVATO [Suspect]
     Active Substance: ESKETAMINE
     Indication: Product used for unknown indication
  2. SUDAFED [Concomitant]
     Active Substance: PSEUDOEPHEDRINE HYDROCHLORIDE

REACTIONS (8)
  - Sinus disorder [Unknown]
  - Nasal septal operation [Unknown]
  - Nasal oedema [Unknown]
  - Scar [Unknown]
  - Wrong technique in product usage process [Unknown]
  - Headache [Unknown]
  - Drug ineffective [Unknown]
  - Dysgeusia [Unknown]
